FAERS Safety Report 8895083 (Version 1)
Quarter: 2012Q4

REPORT INFORMATION
  Report Type: 
  Country: US (occurrence: US)
  Receive Date: 20121108
  Receipt Date: 20121108
  Transmission Date: 20130627
  Serious: Yes (Other)
  Sender: FDA-Public Use
  Company Number: CHPA2012US022867

PATIENT
  Age: 58 Year
  Sex: Female

DRUGS (2)
  1. MAALOX ANTACID/ANTIGAS MAX QDTABS ASST [Suspect]
     Indication: DYSPEPSIA
     Dosage: 1 tablet as needed
     Route: 048
     Dates: start: 2006
  2. MAALOX ANTACID [Suspect]
     Dosage: A swallow as needed
     Route: 048
     Dates: start: 2006

REACTIONS (2)
  - Clostridium difficile infection [Recovered/Resolved]
  - Wrong technique in drug usage process [Unknown]
